FAERS Safety Report 11302086 (Version 1)
Quarter: 2015Q3

REPORT INFORMATION
  Report Type: Spontaneous
  Country: US (occurrence: None)
  Receive Date: 20150723
  Receipt Date: 20150723
  Transmission Date: 20151125
  Serious: No
  Sender: FDA-Public Use
  Company Number: None

PATIENT
  Age: 77 Year
  Sex: Female
  Weight: 81.65 kg

DRUGS (5)
  1. NITROGLYCERIN TRANSDERMAL DELIVERY SYSTEM [Suspect]
     Active Substance: NITROGLYCERIN
     Indication: MYOCARDIAL INFARCTION
     Dosage: 0.2 MG/HR ON IN AM OFF AT BEDTIME ONCE DAILY ON THE SKIN
     Route: 061
     Dates: start: 1996
  2. LOPRESSOR [Concomitant]
     Active Substance: METOPROLOL TARTRATE
  3. ZOCOR [Concomitant]
     Active Substance: SIMVASTATIN
  4. ASPIRIN. [Concomitant]
     Active Substance: ASPIRIN
  5. HCTZ [Concomitant]
     Active Substance: HYDROCHLOROTHIAZIDE

REACTIONS (3)
  - Product adhesion issue [None]
  - Drug dose omission [None]
  - Application site pain [None]

NARRATIVE: CASE EVENT DATE: 20150624
